FAERS Safety Report 21321886 (Version 1)
Quarter: 2022Q3

REPORT INFORMATION
  Report Type: Spontaneous
  Country: US (occurrence: US)
  Receive Date: 20220912
  Receipt Date: 20220912
  Transmission Date: 20221027
  Serious: No
  Sender: FDA-Public Use
  Company Number: US-ALLERGAN-2201021US

PATIENT
  Sex: Male

DRUGS (1)
  1. ANDRODERM [Suspect]
     Active Substance: TESTOSTERONE
     Indication: Blood testosterone decreased
     Dosage: 2 MILLIGRAM
     Dates: start: 20211203, end: 20211229

REACTIONS (5)
  - Therapeutic response unexpected [Unknown]
  - Application site irritation [Recovering/Resolving]
  - Application site burn [Recovering/Resolving]
  - Scar [Not Recovered/Not Resolved]
  - Application site swelling [Not Recovered/Not Resolved]

NARRATIVE: CASE EVENT DATE: 20211201
